FAERS Safety Report 8020269-4 (Version None)
Quarter: 2012Q1

REPORT INFORMATION
  Report Type: 
  Country: None (occurrence: None)
  Receive Date: 20120103
  Receipt Date: 20111227
  Transmission Date: 20120608
  Serious: Yes (Hospitalization, Other)
  Sender: FDA-Public Use
  Company Number: US-US-EMD SERONO, INC.-7001548

PATIENT
  Sex: Male
  Weight: 70 kg

DRUGS (7)
  1. LISINOPRIL [Concomitant]
     Indication: HYPERTENSION
  2. UNSPECIFIED MEDICATIONS [Concomitant]
     Indication: HYPERTENSION
  3. VERAPAMIL [Concomitant]
     Indication: HYPERTENSION
  4. BACLOFEN [Concomitant]
     Indication: MULTIPLE SCLEROSIS
  5. AMLODIPINE [Concomitant]
     Indication: HYPERTENSION
  6. REBIF [Suspect]
     Indication: MULTIPLE SCLEROSIS
     Route: 058
     Dates: start: 20090706
  7. COMBIVENT [Concomitant]
     Indication: CHRONIC OBSTRUCTIVE PULMONARY DISEASE

REACTIONS (11)
  - MYOCARDIAL INFARCTION [None]
  - LOCALISED INFECTION [None]
  - STRESS [None]
  - RENAL DISORDER [None]
  - POST PROCEDURAL HAEMORRHAGE [None]
  - PERIPHERAL CIRCULATORY FAILURE [None]
  - FALL [None]
  - PAIN [None]
  - VITAMIN B12 DECREASED [None]
  - VITAMIN D DECREASED [None]
  - INJECTION SITE INFECTION [None]
